FAERS Safety Report 16103645 (Version 1)
Quarter: 2019Q1

REPORT INFORMATION
  Report Type: Spontaneous
  Country: US (occurrence: US)
  Receive Date: 20190322
  Receipt Date: 20190322
  Transmission Date: 20190418
  Serious: No
  Sender: FDA-Public Use
  Company Number: US-ASTRAZENECA-2019SE36257

PATIENT
  Sex: Female

DRUGS (3)
  1. NEXIUM 24HR [Suspect]
     Active Substance: ESOMEPRAZOLE MAGNESIUM
     Indication: DYSPEPSIA
     Dosage: 1 DF, DAILY (WHEN SHE^S NOT TAKING THE CLEAR MINIS OR REGULAR CAPSULES)
     Route: 048
  2. NEXIUM 24HR CLEARMINIS [Suspect]
     Active Substance: ESOMEPRAZOLE MAGNESIUM
     Indication: DYSPEPSIA
     Dosage: 1 DF, DAILY (WHEN SHE^S NOT TAKING THE REGULAR CAPSULES OR TABLETS)
     Route: 048
  3. NEXIUM 24HR [Suspect]
     Active Substance: ESOMEPRAZOLE MAGNESIUM
     Indication: DYSPEPSIA
     Dosage: 1 DF, DAILY (WHEN SHE^S NOT TAKING THE CLEAR MINIS OR TABLETS)
     Route: 048

REACTIONS (2)
  - Cholelithiasis [Unknown]
  - Product use issue [Unknown]
